FAERS Safety Report 23942778 (Version 2)
Quarter: 2024Q3

REPORT INFORMATION
  Report Type: Spontaneous
  Country: US (occurrence: US)
  Receive Date: 20240605
  Receipt Date: 20240705
  Transmission Date: 20241016
  Serious: Yes (Hospitalization, Other)
  Sender: GENMAB
  Company Number: US-GENMAB-2024-01915

PATIENT
  Age: 56 Year
  Sex: Female

DRUGS (3)
  1. EPKINLY [Suspect]
     Active Substance: EPCORITAMAB-BYSP
     Indication: Diffuse large B-cell lymphoma
     Dosage: 0.16 MILLIGRAM (DOSE 1)
     Route: 065
     Dates: start: 20240503
  2. EPKINLY [Suspect]
     Active Substance: EPCORITAMAB-BYSP
     Dosage: 0.8 MILLIGRAM (DOSE 2)
     Route: 065
     Dates: start: 20240505
  3. EPKINLY [Suspect]
     Active Substance: EPCORITAMAB-BYSP
     Dosage: 48 MILLIGRAM, WEEKLY (C1D15)
     Route: 058
     Dates: start: 20240508, end: 20240508

REACTIONS (7)
  - Pancytopenia [Not Recovered/Not Resolved]
  - Staphylococcal bacteraemia [Unknown]
  - Colitis [Unknown]
  - Neutropenia [Not Recovered/Not Resolved]
  - Sepsis [Unknown]
  - Candida infection [Unknown]
  - Inappropriate schedule of product administration [Unknown]

NARRATIVE: CASE EVENT DATE: 20240503
